FAERS Safety Report 15832213 (Version 2)
Quarter: 2019Q1

REPORT INFORMATION
  Report Type: Spontaneous
  Country: PL (occurrence: PL)
  Receive Date: 20190116
  Receipt Date: 20190128
  Transmission Date: 20190417
  Serious: Yes (Death, Other)
  Sender: FDA-Public Use
  Company Number: PL-TAKEDA-2018MPI017131

PATIENT
  Age: 59 Year
  Sex: Male

DRUGS (3)
  1. RITUXIMAB. [Suspect]
     Active Substance: RITUXIMAB
     Indication: WALDENSTROM^S MACROGLOBULINAEMIA
     Dosage: UNK
     Route: 065
  2. BORTEZOMIB. [Suspect]
     Active Substance: BORTEZOMIB
     Indication: WALDENSTROM^S MACROGLOBULINAEMIA
     Dosage: UNK
     Route: 065
  3. DEXAMETHASONE. [Suspect]
     Active Substance: DEXAMETHASONE
     Indication: WALDENSTROM^S MACROGLOBULINAEMIA
     Dosage: UNK
     Route: 065

REACTIONS (14)
  - General physical condition abnormal [Unknown]
  - Asthenia [Unknown]
  - Blood pressure decreased [Unknown]
  - Body temperature increased [Unknown]
  - Inflammatory marker increased [Fatal]
  - Thrombocytopenia [Unknown]
  - Cachexia [Unknown]
  - Product use in unapproved indication [Unknown]
  - Weight decreased [Unknown]
  - Dysphagia [Unknown]
  - Abdominal pain upper [Unknown]
  - Palpitations [Unknown]
  - Off label use [Unknown]
  - Anaemia [Unknown]
